FAERS Safety Report 6231471-6 (Version None)
Quarter: 2009Q2

REPORT INFORMATION
  Report Type: 
  Country: None (occurrence: None)
  Receive Date: 20090616
  Receipt Date: 20090608
  Transmission Date: 20091009
  Serious: Yes (Death, Hospitalization)
  Sender: FDA-Public Use
  Company Number: A0753958A

PATIENT
  Age: 61 Year
  Sex: Male
  Weight: 105 kg

DRUGS (9)
  1. AVANDIA [Suspect]
     Dosage: 8MG PER DAY
     Route: 048
     Dates: start: 20050216, end: 20051123
  2. GLUCOPHAGE [Concomitant]
  3. INSULIN [Concomitant]
  4. GLYBURIDE [Concomitant]
  5. ZOCOR [Concomitant]
  6. DEPAKOTE [Concomitant]
  7. DILANTIN [Concomitant]
  8. ASPIRIN [Concomitant]
  9. HEPARIN [Concomitant]

REACTIONS (2)
  - CARDIAC FAILURE CONGESTIVE [None]
  - DEATH [None]
